FAERS Safety Report 7000179-1 (Version None)
Quarter: 2010Q3

REPORT INFORMATION
  Report Type: 
  Country: None (occurrence: None)
  Receive Date: 20100920
  Receipt Date: 20091006
  Transmission Date: 20110219
  Serious: No
  Sender: FDA-Public Use
  Company Number: US-ASTRAZENECA-2009SE18341

PATIENT
  Age: 18251 Day
  Sex: Female
  Weight: 46.7 kg

DRUGS (8)
  1. SEROQUEL XR [Suspect]
     Indication: DEPRESSION
     Route: 048
     Dates: start: 20090720, end: 20090729
  2. SEROQUEL XR [Suspect]
     Indication: ANXIETY
     Route: 048
     Dates: start: 20090720, end: 20090729
  3. SEROQUEL XR [Suspect]
     Indication: SLEEP DISORDER
     Route: 048
     Dates: start: 20090720, end: 20090729
  4. SEROQUEL XR [Suspect]
     Route: 048
     Dates: start: 20090730, end: 20090929
  5. SEROQUEL XR [Suspect]
     Route: 048
     Dates: start: 20090730, end: 20090929
  6. SEROQUEL XR [Suspect]
     Route: 048
     Dates: start: 20090730, end: 20090929
  7. LAMICTAL [Concomitant]
     Route: 048
  8. XANAX [Concomitant]
     Indication: ANXIETY
     Route: 048

REACTIONS (7)
  - ABNORMAL DREAMS [None]
  - BLOOD CHOLESTEROL INCREASED [None]
  - CANDIDIASIS [None]
  - DYSPHAGIA [None]
  - DYSPNOEA [None]
  - ELECTROCARDIOGRAM ABNORMAL [None]
  - PHARYNGEAL OEDEMA [None]
